FAERS Safety Report 9919775 (Version 2)
Quarter: 2014Q1

REPORT INFORMATION
  Report Type: Spontaneous
  Country: US (occurrence: US)
  Receive Date: 20140224
  Receipt Date: 20140318
  Transmission Date: 20141002
  Serious: No
  Sender: FDA-Public Use
  Company Number: US-PFIZER INC-2014050616

PATIENT
  Age: 52 Year
  Sex: Female

DRUGS (7)
  1. NEURONTIN [Suspect]
     Indication: ARTHRALGIA
     Dosage: 300 MG, 1X/DAY
     Route: 048
     Dates: start: 20100812
  2. NEURONTIN [Suspect]
     Indication: FIBROMYALGIA
  3. ACCUPRIL [Concomitant]
     Dosage: UNK
  4. ACCURETIC [Concomitant]
     Dosage: UNK
  5. CELEBREX [Concomitant]
     Dosage: 200 MG, BID AS NEEDED
  6. DETROL LA [Concomitant]
     Dosage: UNK
  7. PROCARDIA XL [Concomitant]
     Dosage: UNK

REACTIONS (3)
  - Depression [Recovered/Resolved]
  - Drug hypersensitivity [Unknown]
  - Drug prescribing error [Unknown]
